FAERS Safety Report 9885380 (Version 2)
Quarter: 2014Q1

REPORT INFORMATION
  Report Type: Spontaneous
  Country: IT (occurrence: IT)
  Receive Date: 20140210
  Receipt Date: 20140210
  Transmission Date: 20141002
  Serious: Yes (Hospitalization)
  Sender: FDA-Public Use
  Company Number: IT-SA-199100260HRPI

PATIENT
  Age: 68 Year
  Sex: Female

DRUGS (5)
  1. FUROSEMIDE [Suspect]
     Indication: HYPERTENSION
     Route: 048
     Dates: start: 198804
  2. BEZAFIBRATE [Interacting]
     Indication: TYPE IV HYPERLIPIDAEMIA
     Route: 048
     Dates: start: 198804
  3. NAPROXEN [Suspect]
     Indication: MYALGIA
     Route: 048
     Dates: start: 198807
  4. NIFEDIPINE [Concomitant]
     Indication: HYPERTENSION
     Route: 048
     Dates: start: 198804
  5. ALL OTHER THERAPEUTIC PRODUCTS [Concomitant]
     Route: 048
     Dates: start: 198804

REACTIONS (13)
  - Rhabdomyolysis [Recovering/Resolving]
  - Drug interaction [Unknown]
  - Pain in extremity [Recovering/Resolving]
  - Asthenia [Recovering/Resolving]
  - Aspartate aminotransferase abnormal [Recovered/Resolved]
  - Alanine aminotransferase abnormal [Recovered/Resolved]
  - Myoglobinuria [Recovering/Resolving]
  - Blood lactate dehydrogenase increased [Recovered/Resolved]
  - Blood creatine phosphokinase abnormal [Recovered/Resolved]
  - Renal failure acute [Recovering/Resolving]
  - Anuria [Recovered/Resolved]
  - Blood urea abnormal [Recovering/Resolving]
  - Blood creatinine abnormal [Recovered/Resolved]
